FAERS Safety Report 4347120-8 (Version None)
Quarter: 2004Q1

REPORT INFORMATION
  Report Type: 
  Country: None (occurrence: None)
  Receive Date: 20040329
  Receipt Date: 20040211
  Transmission Date: 20041129
  Serious: No
  Sender: FDA-Public Use
  Company Number: USA040259077

PATIENT
  Age: 31 Year
  Sex: Male

DRUGS (1)
  1. STRATTERA [Suspect]
     Dosage: 80 MG
     Dates: start: 20030303, end: 20030401

REACTIONS (3)
  - FEELING ABNORMAL [None]
  - TESTICULAR INJURY [None]
  - TESTICULAR PAIN [None]
